FAERS Safety Report 19517559 (Version 1)
Quarter: 2021Q3

REPORT INFORMATION
  Report Type: Report from Study
  Country: None (occurrence: CA)
  Receive Date: 20210712
  Receipt Date: 20210712
  Transmission Date: 20211014
  Serious: Yes (Hospitalization)
  Sender: FDA-Public Use
  Company Number: CA-ABBVIE-21K-028-3985014-00

PATIENT
  Sex: Male

DRUGS (1)
  1. SKYRIZI [Suspect]
     Active Substance: RISANKIZUMAB-RZAA
     Indication: PSORIASIS
     Route: 058
     Dates: start: 20200910

REACTIONS (5)
  - Loss of consciousness [Recovered/Resolved]
  - Scratch [Recovered/Resolved]
  - Contusion [Recovered/Resolved]
  - Road traffic accident [Recovered/Resolved]
  - Suture insertion [Recovered/Resolved]
